FAERS Safety Report 13962564 (Version 5)
Quarter: 2018Q4

REPORT INFORMATION
  Report Type: Spontaneous
  Country: DE (occurrence: DE)
  Receive Date: 20170913
  Receipt Date: 20181008
  Transmission Date: 20190204
  Serious: Yes (Death, Life-Threatening, Hospitalization, Other)
  Sender: FDA-Public Use
  Company Number: DE-SUN PHARMACEUTICAL INDUSTRIES LTD-2017RR-149436

PATIENT
  Sex: Female

DRUGS (6)
  1. IBUPROFEN. [Suspect]
     Active Substance: IBUPROFEN
     Indication: SUICIDE ATTEMPT
     Dosage: ABSOLUTE TOTAL QUANTITY 5 GRAM. DOSE; 8 MG/KG BODY WEIGHT
     Route: 065
  2. IBUPROFEN. [Suspect]
     Active Substance: IBUPROFEN
     Indication: SUICIDE ATTEMPT
     Dosage: 5 DF, UNK
     Route: 065
  3. MIRTAZAPINE. [Suspect]
     Active Substance: MIRTAZAPINE
     Indication: SUICIDE ATTEMPT
     Dosage: DOSE PER KG BODY WEIGHT: 13 MG/KG
     Route: 065
  4. QUETIAPINE. [Suspect]
     Active Substance: QUETIAPINE
     Indication: SUICIDE ATTEMPT
     Dosage: 29 DF, UNK
     Route: 065
  5. ELDER FLOWER, GENTIAN ROOT, PRIMULA FLOWER WITH CALYX, RUMEX ACETOSA, [Suspect]
     Active Substance: HERBALS
     Indication: SUICIDE ATTEMPT
     Dosage: 5 DF, UNK
     Route: 065
  6. QUETIAPINE. [Suspect]
     Active Substance: QUETIAPINE
     Indication: SUICIDE ATTEMPT
     Dosage: ABSOLUTE TOTAL QUANTITY 14.5 GRAM, DOSE 25 MG/KG
     Route: 065

REACTIONS (7)
  - Hypoxia [Unknown]
  - Acute respiratory distress syndrome [Unknown]
  - Seizure [Unknown]
  - Loss of consciousness [Unknown]
  - Toxicity to various agents [Unknown]
  - Hypotension [Unknown]
  - Respiratory failure [Fatal]
